FAERS Safety Report 17227933 (Version 3)
Quarter: 2020Q1

REPORT INFORMATION
  Report Type: Spontaneous
  Country: US (occurrence: US)
  Receive Date: 20200103
  Receipt Date: 20200130
  Transmission Date: 20200409
  Serious: Yes (Death, Hospitalization, Other)
  Sender: FDA-Public Use
  Company Number: US-KARYOPHARM THERAPEUTICS, INC.-2019KPT001031

PATIENT

DRUGS (3)
  1. VARUBI [Concomitant]
     Active Substance: ROLAPITANT
     Indication: PROPHYLAXIS
     Dosage: 180 MG, 1X/2 WEEKS
     Dates: start: 201912
  2. ZOFRAN [Concomitant]
     Active Substance: ONDANSETRON HYDROCHLORIDE
     Indication: PROPHYLAXIS
  3. XPOVIO [Suspect]
     Active Substance: SELINEXOR
     Indication: PLASMA CELL MYELOMA
     Dosage: 80 MG, WEEKLY
     Route: 048
     Dates: start: 20191214, end: 202001

REACTIONS (9)
  - Hyperkalaemia [Unknown]
  - Constipation [Recovered/Resolved]
  - Flatulence [Unknown]
  - Decreased appetite [Unknown]
  - Nausea [Unknown]
  - Chest pain [Unknown]
  - Death [Fatal]
  - Anaemia [Unknown]
  - Thrombocytopenia [Unknown]

NARRATIVE: CASE EVENT DATE: 20191225
